FAERS Safety Report 4316048-1 (Version None)
Quarter: 2004Q1

REPORT INFORMATION
  Report Type: 
  Country: None (occurrence: None)
  Receive Date: 20040312
  Receipt Date: 20040304
  Transmission Date: 20041129
  Serious: Yes (Life-Threatening, Hospitalization)
  Sender: FDA-Public Use
  Company Number: PHBS2004CA03144

PATIENT
  Sex: Female

DRUGS (5)
  1. LIORESAL [Suspect]
     Dosage: 530
     Route: 037
  2. LIORESAL [Suspect]
     Dosage: 585
     Route: 037
     Dates: start: 20040303
  3. LIORESAL [Suspect]
     Route: 048
  4. CLONAZEPAM [Concomitant]
     Route: 065
  5. DEPAKENE [Concomitant]
     Route: 065

REACTIONS (2)
  - CHEYNE-STOKES RESPIRATION [None]
  - RESPIRATORY RATE DECREASED [None]
